FAERS Safety Report 25257309 (Version 1)
Quarter: 2025Q2

REPORT INFORMATION
  Report Type: Spontaneous
  Country: US (occurrence: US)
  Receive Date: 20250430
  Receipt Date: 20250430
  Transmission Date: 20250717
  Serious: Yes (Hospitalization, Other)
  Sender: AMGEN
  Company Number: US-AMGEN-USASP2025083215

PATIENT
  Age: 43 Year
  Sex: Female

DRUGS (10)
  1. PEGFILGRASTIM [Suspect]
     Active Substance: PEGFILGRASTIM
     Indication: Prophylaxis
     Route: 065
  2. DOCETAXEL [Concomitant]
     Active Substance: DOCETAXEL
     Indication: Breast cancer
     Dosage: 75 MILLIGRAM/SQ. METER, Q3WK (FOR THE THIRD CYCLE OF CHEMOTHERAPY DOCETAXEL WAS CHANGED TO WEEKLY)
  3. CARBOPLATIN [Concomitant]
     Active Substance: CARBOPLATIN
     Indication: Breast cancer
     Dosage: UNK UNK, Q3WK (AREA UNDER THE CURVE (AUC) OF 6) (WEEKLY WITH AUC OF 2)
  4. TRASTUZUMAB [Concomitant]
     Active Substance: TRASTUZUMAB
     Indication: Breast cancer
     Dosage: UNK UNK, Q3WK (8MG/KG FOLLOWED BY 6MG/KG)
  5. PERTUZUMAB [Concomitant]
     Active Substance: PERTUZUMAB
     Indication: Breast cancer
     Dosage: UNK UNK, Q3WK (840MG FOLLOWED BY 420MG)
  6. APREPITANT [Concomitant]
     Active Substance: APREPITANT
     Indication: Breast cancer
  7. DEXAMETHASONE [Concomitant]
     Active Substance: DEXAMETHASONE
     Indication: Breast cancer
  8. PALONOSETRON [Concomitant]
     Active Substance: PALONOSETRON
     Indication: Breast cancer
  9. PACLITAXEL [Concomitant]
     Active Substance: PACLITAXEL
     Indication: Breast cancer
     Dosage: UNK UNK, QWK (WEEKLY WITH AUC OF 2)
  10. DIPHENHYDRAMINE [Concomitant]
     Active Substance: DIPHENHYDRAMINE
     Indication: Breast cancer

REACTIONS (4)
  - Haemorrhage urinary tract [Unknown]
  - Suprapubic pain [Unknown]
  - White blood cell count increased [Unknown]
  - Bladder hypertrophy [Unknown]
